FAERS Safety Report 9922782 (Version 2)
Quarter: 2014Q1

REPORT INFORMATION
  Report Type: Report from Study
  Country: BR (occurrence: BR)
  Receive Date: 20140225
  Receipt Date: 20140225
  Transmission Date: 20141002
  Serious: Yes (Hospitalization)
  Sender: FDA-Public Use
  Company Number: BR-ABBVIE-13P-020-1111054-00

PATIENT
  Age: 62 Year
  Sex: Female
  Weight: 73 kg

DRUGS (21)
  1. HUMIRA [Suspect]
     Indication: RHEUMATOID ARTHRITIS
     Route: 058
     Dates: start: 20120510
  2. ANTIBIOTICS [Suspect]
     Indication: PRODUCT USED FOR UNKNOWN INDICATION
  3. AZULFIN [Suspect]
     Indication: ARTHRITIS
     Route: 048
     Dates: start: 201206
  4. AZULFIN [Suspect]
  5. PREDNISOL /00016202/ [Suspect]
     Indication: ARTHRITIS
     Route: 048
     Dates: start: 2010
  6. PREDNISOL /00016202/ [Suspect]
  7. BIOFENAC [Concomitant]
     Indication: ARTHRITIS
     Route: 048
     Dates: start: 2010
  8. ENALAPRIL MALEATE [Concomitant]
     Indication: HYPERTENSION
     Route: 048
     Dates: start: 2003
  9. ENALAPRIL MALEATE [Concomitant]
     Indication: BLOOD PRESSURE ABNORMAL
  10. ATENOLOL [Concomitant]
     Indication: HYPERTENSION
     Route: 048
     Dates: start: 2003
  11. ATENOLOL [Concomitant]
     Indication: BLOOD PRESSURE ABNORMAL
  12. SPIRONOLACTONE [Concomitant]
     Indication: HYPERTENSION
     Route: 048
     Dates: start: 2003
  13. SPIRONOLACTONE [Concomitant]
     Indication: BLOOD PRESSURE ABNORMAL
  14. SIMVASTATIN [Concomitant]
     Indication: BLOOD CHOLESTEROL ABNORMAL
     Route: 048
     Dates: start: 2004
  15. ASPIRIN [Concomitant]
     Indication: BLOOD CHOLESTEROL ABNORMAL
     Route: 048
     Dates: start: 2004
  16. SEPROPLAN [Concomitant]
     Indication: SLEEP DISORDER THERAPY
     Route: 048
     Dates: start: 2011
  17. PRAZOL [Concomitant]
     Indication: GASTRIC DISORDER
     Route: 048
     Dates: start: 2012
  18. PARACETAMOL [Concomitant]
     Indication: PAIN
     Dosage: 750MG DAILY IF NEEDED
     Route: 048
     Dates: start: 2011
  19. PIROXICAM [Concomitant]
     Indication: PAIN
  20. AMITRIPTYLINE [Concomitant]
     Indication: ANTIDEPRESSANT THERAPY
  21. CLONAZEPAN [Concomitant]
     Indication: SLEEP DISORDER THERAPY

REACTIONS (3)
  - Gastric disorder [Recovered/Resolved]
  - Liver disorder [Recovered/Resolved]
  - Rheumatic disorder [Recovered/Resolved]
